FAERS Safety Report 8162363-3 (Version None)
Quarter: 2012Q1

REPORT INFORMATION
  Report Type: 
  Country: None (occurrence: None)
  Receive Date: 20120224
  Receipt Date: 20120214
  Transmission Date: 20120608
  Serious: Yes (Other)
  Sender: FDA-Public Use
  Company Number: US-ELI_LILLY_AND_COMPANY-US201202002527

PATIENT
  Sex: Female

DRUGS (2)
  1. FORTEO [Suspect]
     Indication: OSTEOPOROSIS
     Dosage: 20 UG, QD
     Dates: start: 20120202
  2. FORTEO [Suspect]
     Dosage: 20 UG, QD

REACTIONS (3)
  - HEADACHE [None]
  - SYNCOPE [None]
  - LOSS OF CONSCIOUSNESS [None]
